FAERS Safety Report 12972267 (Version 1)
Quarter: 2016Q4

REPORT INFORMATION
  Report Type: Spontaneous
  Country: US (occurrence: US)
  Receive Date: 20161124
  Receipt Date: 20161124
  Transmission Date: 20170207
  Serious: Yes (Death, Hospitalization)
  Sender: FDA-Public Use
  Company Number: US-ACTELION-A-NJ2016-145789

PATIENT
  Age: 90 Year
  Sex: Female

DRUGS (12)
  1. OCUVITE [Concomitant]
     Active Substance: VITAMINS
  2. PERCOCET [Concomitant]
     Active Substance: ACETAMINOPHEN\OXYCODONE HYDROCHLORIDE
     Dosage: 5/325 MG, PRN Q6H
  3. LASIX [Concomitant]
     Active Substance: FUROSEMIDE
  4. PRAVASTATIN. [Concomitant]
     Active Substance: PRAVASTATIN
     Dosage: 80 MG, UNK
  5. OPSUMIT [Suspect]
     Active Substance: MACITENTAN
     Indication: PULMONARY ARTERIAL HYPERTENSION
     Dosage: 10 MG, UNK
     Route: 048
     Dates: start: 20160109
  6. POTASSIUM [Concomitant]
     Active Substance: POTASSIUM
  7. ASPIRIN. [Concomitant]
     Active Substance: ASPIRIN
     Dosage: 81 MG, UNK
  8. LEXAPRO [Concomitant]
     Active Substance: ESCITALOPRAM OXALATE
     Dosage: 10 MG, UNK
  9. ACETAMINOPHEN. [Concomitant]
     Active Substance: ACETAMINOPHEN
     Dosage: 325 MG, Q6HRS
  10. OXYGEN. [Concomitant]
     Active Substance: OXYGEN
  11. XANAX [Concomitant]
     Active Substance: ALPRAZOLAM
     Dosage: 0.25 MG, QPM
  12. AMLODIPINE [Concomitant]
     Active Substance: AMLODIPINE BESYLATE

REACTIONS (7)
  - Cardiovascular disorder [Fatal]
  - Insomnia [Unknown]
  - Depression [Unknown]
  - Pulmonary hypertension [Unknown]
  - Condition aggravated [Unknown]
  - Pericardial effusion [Unknown]
  - Disease complication [Fatal]

NARRATIVE: CASE EVENT DATE: 20161027
